FAERS Safety Report 11541013 (Version 5)
Quarter: 2015Q4

REPORT INFORMATION
  Report Type: Spontaneous
  Country: US (occurrence: US)
  Receive Date: 20150923
  Receipt Date: 20151013
  Transmission Date: 20160304
  Serious: Yes (Other)
  Sender: FDA-Public Use
  Company Number: CHPA2015US011084

PATIENT
  Age: 66 Year
  Sex: Female

DRUGS (2)
  1. VOLTAREN [Suspect]
     Active Substance: DICLOFENAC SODIUM
     Indication: BACK PAIN
     Dosage: 2 TO 4 G, BID TO TID TO BACK
     Route: 061
     Dates: start: 2015, end: 20150919
  2. VOLTAREN [Suspect]
     Active Substance: DICLOFENAC SODIUM
     Dosage: 2 G, BID TO KNEE
     Route: 061
     Dates: start: 2015, end: 20150919

REACTIONS (9)
  - Chromaturia [Recovered/Resolved]
  - Drug administered at inappropriate site [Unknown]
  - Urinary tract infection [Recovering/Resolving]
  - Product use issue [Unknown]
  - White blood cell count increased [Unknown]
  - Multiple fractures [Recovering/Resolving]
  - Inappropriate schedule of drug administration [Unknown]
  - Arthralgia [Recovering/Resolving]
  - Incorrect dose administered [Unknown]

NARRATIVE: CASE EVENT DATE: 2015
